FAERS Safety Report 13497927 (Version 1)
Quarter: 2017Q2

REPORT INFORMATION
  Report Type: Report from Study
  Country: US (occurrence: US)
  Receive Date: 20170501
  Receipt Date: 20170501
  Transmission Date: 20170830
  Serious: Yes (Other)
  Sender: FDA-Public Use
  Company Number: US-TAKEDA-2017TUS008719

PATIENT
  Age: 37 Year
  Sex: Female

DRUGS (1)
  1. VEDOLIZUMAB [Suspect]
     Active Substance: VEDOLIZUMAB
     Indication: CROHN^S DISEASE
     Dosage: 300 MG, UNK
     Route: 042
     Dates: start: 201608

REACTIONS (7)
  - Lacrimation increased [Unknown]
  - Dry eye [Unknown]
  - Nausea [Unknown]
  - Headache [Unknown]
  - Dizziness [Unknown]
  - Ear discomfort [Unknown]
  - Vision blurred [Unknown]
